FAERS Safety Report 17353651 (Version 2)
Quarter: 2022Q1

REPORT INFORMATION
  Report Type: Spontaneous
  Country: ES (occurrence: ES)
  Receive Date: 20200131
  Receipt Date: 20220219
  Transmission Date: 20220423
  Serious: Yes (Death, Hospitalization, Other)
  Sender: FDA-Public Use
  Company Number: ES-TEVA-2020-ES-1171167

PATIENT
  Age: 30 Year
  Sex: Male

DRUGS (11)
  1. VORICONAZOLE [Suspect]
     Active Substance: VORICONAZOLE
     Indication: Antifungal treatment
     Dosage: UNK(SYSTEMIC AND INTRAVITREAL VORICONAZOLE)
  2. RUXOLITINIB [Suspect]
     Active Substance: RUXOLITINIB
     Indication: Graft versus host disease in skin
     Dosage: UNK
     Route: 065
     Dates: start: 20170801
  3. AMPHOTERICIN B [Suspect]
     Active Substance: AMPHOTERICIN B
     Indication: Antifungal treatment
     Dosage: UNK
     Route: 065
  4. BUDESONIDE [Suspect]
     Active Substance: BUDESONIDE
     Indication: Graft versus host disease in skin
     Dosage: UNK
     Route: 065
     Dates: start: 20170801
  5. PREDNISONE [Suspect]
     Active Substance: PREDNISONE
     Indication: Graft versus host disease in skin
     Dosage: UNK
     Route: 065
     Dates: start: 20170801
  6. POSACONAZOLE [Suspect]
     Active Substance: POSACONAZOLE
     Indication: Antifungal treatment
     Dosage: 300 MILLIGRAM, ONCE A DAY
     Route: 065
  7. TACROLIMUS [Suspect]
     Active Substance: TACROLIMUS
     Indication: Graft versus host disease in skin
     Dosage: UNK
     Route: 065
     Dates: start: 20170801
  8. LOPERAMIDE HYDROCHLORIDE [Concomitant]
     Active Substance: LOPERAMIDE HYDROCHLORIDE
     Indication: Product used for unknown indication
     Dosage: UNK
     Route: 065
  9. OMEPRAZOLE [Concomitant]
     Active Substance: OMEPRAZOLE
     Indication: Product used for unknown indication
     Dosage: 20 MILLIGRAM, ONCE A DAY
     Route: 065
  10. SULFAMETHOXAZOLE\TRIMETHOPRIM [Concomitant]
     Active Substance: SULFAMETHOXAZOLE\TRIMETHOPRIM
     Indication: Product used for unknown indication
     Dosage: (TRIMETHOPRIM/SULFAMETHOXAZOLE-400+80 MG, MONDAY, WEDNESDAY, AND FRIDAY
     Route: 065
  11. INSULIN NOS [Concomitant]
     Active Substance: INSULIN NOS
     Indication: Product used for unknown indication
     Dosage: UNK
     Route: 065

REACTIONS (12)
  - Eye infection fungal [Fatal]
  - Aspergillus infection [Fatal]
  - Cerebral haemorrhage [Fatal]
  - Cerebral aspergillosis [Fatal]
  - Septic embolus [Fatal]
  - Cerebral haematoma [Fatal]
  - Cerebral artery embolism [Fatal]
  - Brain herniation [Fatal]
  - Drug ineffective [Fatal]
  - Necrotising retinitis [Not Recovered/Not Resolved]
  - Retinal haemorrhage [Not Recovered/Not Resolved]
  - Retinal ischaemia [Not Recovered/Not Resolved]
